FAERS Safety Report 5824926-7 (Version None)
Quarter: 2008Q3

REPORT INFORMATION
  Report Type: 
  Country: None (occurrence: None)
  Receive Date: 20080728
  Receipt Date: 20080716
  Transmission Date: 20090109
  Serious: Yes (Other)
  Sender: FDA-Public Use
  Company Number: BR-PFIZER INC-2008041011

PATIENT
  Sex: Female
  Weight: 60 kg

DRUGS (3)
  1. AROMASIN [Suspect]
     Indication: BREAST CANCER
     Route: 048
  2. TRASTUZUMAB [Concomitant]
     Route: 065
  3. ZOMETA [Concomitant]
     Route: 065

REACTIONS (1)
  - BLOOD GLUCOSE INCREASED [None]
